FAERS Safety Report 9752240 (Version 1)
Quarter: 2013Q4

REPORT INFORMATION
  Report Type: Spontaneous
  Country: US (occurrence: None)
  Receive Date: 20131211
  Receipt Date: 20131211
  Transmission Date: 20140711
  Serious: Yes (Other)
  Sender: FDA-Public Use
  Company Number: None

PATIENT
  Age: 61 Year
  Sex: Female
  Weight: 70.31 kg

DRUGS (1)
  1. OMEPRAZOLE [Suspect]
     Indication: GASTROOESOPHAGEAL REFLUX DISEASE
     Dosage: ONE CAPSULE ONCE DAILY TAKEN BY MOUTH
     Route: 048
     Dates: start: 20131116, end: 20131203

REACTIONS (7)
  - Pruritus [None]
  - Oesophageal spasm [None]
  - Chest pain [None]
  - Urticaria [None]
  - Local swelling [None]
  - Erythema multiforme [None]
  - Product quality issue [None]
